FAERS Safety Report 20638247 (Version 2)
Quarter: 2022Q2

REPORT INFORMATION
  Report Type: Spontaneous
  Country: US (occurrence: US)
  Receive Date: 20220325
  Receipt Date: 20220408
  Transmission Date: 20220720
  Serious: No
  Sender: FDA-Public Use
  Company Number: US-SUNOVION-2022SUN000891

PATIENT
  Age: 60 Year
  Sex: Female

DRUGS (2)
  1. APTIOM [Suspect]
     Active Substance: ESLICARBAZEPINE ACETATE
     Dosage: 300 MG
     Route: 048
  2. APTIOM [Suspect]
     Active Substance: ESLICARBAZEPINE ACETATE
     Dosage: 600 MG, QD
     Route: 048

REACTIONS (4)
  - Aneurysm [Unknown]
  - Dysgraphia [Unknown]
  - Bone demineralisation [Unknown]
  - Underdose [Unknown]
